FAERS Safety Report 8284615-9 (Version None)
Quarter: 2012Q2

REPORT INFORMATION
  Report Type: 
  Country: None (occurrence: None)
  Receive Date: 20120413
  Receipt Date: 20120131
  Transmission Date: 20120825
  Serious: No
  Sender: FDA-Public Use
  Company Number: US-ASTRAZENECA-2003UW02005

PATIENT
  Age: 74 Year
  Sex: Male
  Weight: 83.9 kg

DRUGS (5)
  1. DIAZIDE [Concomitant]
  2. XANAX [Concomitant]
  3. NEXIUM [Suspect]
     Indication: GASTROOESOPHAGEAL REFLUX DISEASE
     Route: 048
  4. THYROID MEDICATION [Concomitant]
  5. PLENDIL [Concomitant]

REACTIONS (3)
  - DYSPHONIA [None]
  - ADVERSE EVENT [None]
  - DRY MOUTH [None]
